FAERS Safety Report 8179693-1 (Version None)
Quarter: 2012Q1

REPORT INFORMATION
  Report Type: 
  Country: None (occurrence: None)
  Receive Date: 20120302
  Receipt Date: 20120227
  Transmission Date: 20120608
  Serious: Yes (Death)
  Sender: FDA-Public Use
  Company Number: US-CELGENEUS-163-21880-12022962

PATIENT
  Age: 75 Year
  Sex: Male

DRUGS (6)
  1. SCOPOLAMINE [Concomitant]
     Route: 065
  2. ATENOLOL [Concomitant]
     Route: 065
  3. ALBUTEROL [Concomitant]
     Route: 065
  4. REVLIMID [Suspect]
     Indication: MULTIPLE MYELOMA
     Dosage: 25 MILLIGRAM
     Route: 048
     Dates: start: 20110301, end: 20110601
  5. AMLODIPINE [Concomitant]
     Route: 065
  6. ACYCLOVIR [Concomitant]
     Route: 065

REACTIONS (2)
  - DEATH [None]
  - MULTIPLE MYELOMA [None]
